FAERS Safety Report 4789547-6 (Version None)
Quarter: 2005Q4

REPORT INFORMATION
  Report Type: 
  Country: None (occurrence: None)
  Receive Date: 20051005
  Receipt Date: 20051005
  Transmission Date: 20060501
  Serious: No
  Sender: FDA-Public Use
  Company Number: None

PATIENT
  Age: 63 Year
  Sex: Male

DRUGS (9)
  1. ARGATROBAN [Suspect]
     Indication: PROPHYLAXIS
     Dosage: 2 MCG/KG/MIN
  2. WARFARIN SODIUM [Concomitant]
  3. METOPROLOL [Concomitant]
  4. TAMSULOSIN [Concomitant]
  5. INSULIN SS [Concomitant]
  6. FUROSEMIDE [Concomitant]
  7. RAMIPRIL [Concomitant]
  8. AMIODARONE [Concomitant]
  9. RANITIDINE [Concomitant]

REACTIONS (4)
  - ACTIVATED PARTIAL THROMBOPLASTIN TIME PROLONGED [None]
  - HAEMATOCHEZIA [None]
  - INTERNATIONAL NORMALISED RATIO INCREASED [None]
  - RECTAL HAEMORRHAGE [None]
